FAERS Safety Report 4284415-0 (Version None)
Quarter: 2004Q1

REPORT INFORMATION
  Report Type: 
  Country: None (occurrence: None)
  Receive Date: 20040130
  Receipt Date: 20040109
  Transmission Date: 20041129
  Serious: Yes (Hospitalization)
  Sender: FDA-Public Use
  Company Number: USA040156188

PATIENT
  Age: 93 Year
  Sex: Male
  Weight: 71 kg

DRUGS (1)
  1. HUMALOG [Suspect]
     Dosage: 22 U/DAY
     Dates: start: 20030201

REACTIONS (1)
  - CONFUSIONAL STATE [None]
